FAERS Safety Report 13788059 (Version 1)
Quarter: 2017Q3

REPORT INFORMATION
  Report Type: Spontaneous
  Country: US (occurrence: US)
  Receive Date: 20170725
  Receipt Date: 20170725
  Transmission Date: 20171127
  Serious: No
  Sender: FDA-Public Use
  Company Number: US-JNJFOC-20170627190

PATIENT
  Age: 50 Year
  Sex: Female
  Weight: 97.52 kg

DRUGS (4)
  1. MOTRIN [Suspect]
     Active Substance: IBUPROFEN
     Route: 048
  2. REMICADE [Concomitant]
     Active Substance: INFLIXIMAB
     Indication: PSORIATIC ARTHROPATHY
     Route: 042
     Dates: start: 201704, end: 2017
  3. REMICADE [Concomitant]
     Active Substance: INFLIXIMAB
     Indication: PSORIATIC ARTHROPATHY
     Route: 042
     Dates: start: 2017
  4. MOTRIN [Suspect]
     Active Substance: IBUPROFEN
     Indication: HEADACHE
     Dosage: TOTAL DOSE 800 MG
     Route: 048
     Dates: start: 2017

REACTIONS (3)
  - Oral mucosal blistering [Unknown]
  - Drug ineffective [Unknown]
  - Tongue blistering [Unknown]

NARRATIVE: CASE EVENT DATE: 201706
